FAERS Safety Report 7866202-7 (Version None)
Quarter: 2011Q4

REPORT INFORMATION
  Report Type: 
  Country: None (occurrence: None)
  Receive Date: 20111028
  Receipt Date: 20110511
  Transmission Date: 20120403
  Serious: No
  Sender: FDA-Public Use
  Company Number: US-GLAXOSMITHKLINE-A0926993A

PATIENT
  Age: 41 Year
  Sex: Female

DRUGS (8)
  1. NUVIGIL [Concomitant]
  2. ADVAIR DISKUS 100/50 [Suspect]
     Indication: BRONCHITIS
     Dosage: 1PUFF TWICE PER DAY
     Route: 055
     Dates: start: 20110509
  3. VITAMIN D SUPPLEMENT [Concomitant]
  4. LEVAQUIN [Concomitant]
  5. COPAXONE [Concomitant]
  6. SIMVASTATIN [Concomitant]
  7. EFFEXOR [Concomitant]
  8. NASONEX [Concomitant]

REACTIONS (1)
  - DYSGEUSIA [None]
